FAERS Safety Report 7751432-5 (Version None)
Quarter: 2011Q3

REPORT INFORMATION
  Report Type: 
  Country: None (occurrence: None)
  Receive Date: 20110914
  Receipt Date: 20110831
  Transmission Date: 20111222
  Serious: Yes (Other)
  Sender: FDA-Public Use
  Company Number: PHEH2011US03093

PATIENT
  Sex: Male

DRUGS (7)
  1. UNKNOWN PAIN MEDICATIONS [Suspect]
     Dosage: UNK UKN, UNK
  2. METOPROLOL [Concomitant]
     Indication: BLOOD PRESSURE
     Dosage: 50 MG, QD
  3. AMLODIPINE [Concomitant]
     Dosage: 5 MG, QD
  4. MAGNESIUM SUPPLEMENTS [Concomitant]
     Dosage: UNK UKN, UNK
  5. DIOVAN [Suspect]
     Dosage: 80 MG, QD
  6. POTASSIUM SUPPLEMENTS [Concomitant]
     Dosage: UNK UKN, UNK
  7. METOPROLOL [Concomitant]
     Indication: TREMOR

REACTIONS (7)
  - HYPOAESTHESIA [None]
  - BLOOD POTASSIUM DECREASED [None]
  - BALANCE DISORDER [None]
  - BLOOD GLUCOSE INCREASED [None]
  - TONGUE BITING [None]
  - MOVEMENT DISORDER [None]
  - CONVULSION [None]
